FAERS Safety Report 5377716-6 (Version None)
Quarter: 2007Q3

REPORT INFORMATION
  Report Type: 
  Country: None (occurrence: None)
  Receive Date: 20070703
  Receipt Date: 20070626
  Transmission Date: 20080115
  Serious: Yes (Disabling)
  Sender: FDA-Public Use
  Company Number: FR-BOEHRINGER INGELHEIM PHARMACEUTICALS, INC.-2007-FF-00615FF

PATIENT
  Sex: Female
  Weight: 69 kg

DRUGS (11)
  1. SIFROL [Suspect]
     Indication: PARKINSON'S DISEASE
     Route: 048
     Dates: end: 20070525
  2. SIFROL [Suspect]
     Route: 048
     Dates: start: 20070526, end: 20070528
  3. SINEMET [Concomitant]
  4. CODOLIPRANE [Concomitant]
  5. SERESTA [Concomitant]
  6. LAROXYL [Concomitant]
  7. RIVOTRIL [Concomitant]
  8. COTAREG [Concomitant]
  9. TENORMIN [Concomitant]
  10. TANAKAN [Concomitant]
  11. GINKOR [Concomitant]

REACTIONS (4)
  - FATIGUE [None]
  - HYPOKINESIA [None]
  - MEDICATION ERROR [None]
  - VERTIGO [None]
